FAERS Safety Report 9359297 (Version 2)
Quarter: 2013Q2

REPORT INFORMATION
  Report Type: Spontaneous
  Country: US (occurrence: US)
  Receive Date: 20130620
  Receipt Date: 20130627
  Transmission Date: 20140414
  Serious: Yes (Death)
  Sender: FDA-Public Use
  Company Number: CHPA2013US010050

PATIENT
  Sex: Male

DRUGS (1)
  1. BUCKLEY^S COUGH MIXTURE [Suspect]
     Indication: PARANASAL SINUS HYPERSECRETION
     Dosage: UNK, UNK
     Route: 048

REACTIONS (2)
  - Parkinson^s disease [Fatal]
  - Off label use [Unknown]
